FAERS Safety Report 8238115-2 (Version None)
Quarter: 2012Q1

REPORT INFORMATION
  Report Type: 
  Country: None (occurrence: None)
  Receive Date: 20120327
  Receipt Date: 20120319
  Transmission Date: 20120608
  Serious: Yes (Hospitalization)
  Sender: FDA-Public Use
  Company Number: DE-GLAXOSMITHKLINE-D0074932A

PATIENT
  Age: 22 Year
  Sex: Female

DRUGS (5)
  1. ARIXTRA [Suspect]
     Indication: THROMBOSIS PROPHYLAXIS
     Route: 058
  2. TRAMADOL HCL [Suspect]
     Dosage: 100MG PER DAY
     Route: 048
     Dates: start: 20110805, end: 20110819
  3. ARCOXIA [Suspect]
     Dosage: 120MG PER DAY
     Route: 048
     Dates: start: 20110805, end: 20110819
  4. NOVALGIN [Concomitant]
     Dosage: 500MG PER DAY
     Route: 048
  5. LORAZEPAM [Suspect]
     Indication: INITIAL INSOMNIA
     Route: 048

REACTIONS (1)
  - HEPATITIS TOXIC [None]
